FAERS Safety Report 12463518 (Version 1)
Quarter: 2016Q2

REPORT INFORMATION
  Report Type: Spontaneous
  Country: US (occurrence: None)
  Receive Date: 20160613
  Receipt Date: 20160613
  Transmission Date: 20160815
  Serious: Yes (Other)
  Sender: FDA-Public Use
  Company Number: None

PATIENT
  Age: 30 Year
  Sex: Female

DRUGS (18)
  1. ORTHO MICRONOR [Concomitant]
     Active Substance: NORETHINDRONE
  2. MAXALT [Concomitant]
     Active Substance: RIZATRIPTAN BENZOATE
  3. BUTTERBUR [Concomitant]
  4. PAMELOR [Concomitant]
     Active Substance: NORTRIPTYLINE HYDROCHLORIDE
  5. TEMOVATE [Concomitant]
     Active Substance: CLOBETASOL PROPIONATE
  6. EXCEDRIN [Concomitant]
     Active Substance: ACETAMINOPHEN\ASPIRIN\CAFFEINE
  7. QNASL [Concomitant]
     Active Substance: BECLOMETHASONE DIPROPIONATE
  8. LIDOCAINE PATCH [Concomitant]
     Active Substance: LIDOCAINE
  9. SALINE NASAL RINSE WITH GENTAMYCIN AND MOMETASONE [Concomitant]
  10. BIAXIN [Concomitant]
     Active Substance: CLARITHROMYCIN
  11. PEPCID COMPLETE [Concomitant]
     Active Substance: CALCIUM CARBONATE\FAMOTIDINE\MAGNESIUM HYDROXIDE
  12. COENZYME Q10 [Concomitant]
     Active Substance: UBIDECARENONE
  13. ZECUITY [Suspect]
     Active Substance: SUMATRIPTAN SUCCINATE
     Indication: MIGRAINE
     Dosage: 1 PATCH AS NEEDED APPLIED AS MEDICATED PATCH TO SKIN
     Dates: start: 20160404, end: 20160607
  14. SILVADENE [Concomitant]
     Active Substance: SILVER SULFADIAZINE
  15. ADVIL [Concomitant]
     Active Substance: IBUPROFEN
  16. ALEVE [Concomitant]
     Active Substance: NAPROXEN SODIUM
  17. VITAMIN B2 [Concomitant]
     Active Substance: RIBOFLAVIN
  18. MULTIVITAMIN [Concomitant]
     Active Substance: VITAMINS

REACTIONS (8)
  - Application site warmth [None]
  - Burns second degree [None]
  - Application site erythema [None]
  - Application site reaction [None]
  - Application site pain [None]
  - Application site inflammation [None]
  - Abasia [None]
  - Application site vesicles [None]

NARRATIVE: CASE EVENT DATE: 20160608
